FAERS Safety Report 4932105-0 (Version None)
Quarter: 2006Q1

REPORT INFORMATION
  Report Type: 
  Country: None (occurrence: None)
  Receive Date: 20060227
  Receipt Date: 20051214
  Transmission Date: 20060701
  Serious: Yes (Life-Threatening)
  Sender: FDA-Public Use
  Company Number: 2005-135784-NL

PATIENT
  Age: 35 Year
  Sex: Male

DRUGS (3)
  1. DANAPAROID SODIUM [Suspect]
     Indication: DISSEMINATED INTRAVASCULAR COAGULATION
     Dosage: 1250 ANTI_XA BID
     Dates: start: 20051114
  2. ANTIBIOTICS [Concomitant]
  3. ANTI HIV MEDICATION [Concomitant]

REACTIONS (3)
  - DEPRESSED LEVEL OF CONSCIOUSNESS [None]
  - GENERAL PHYSICAL CONDITION ABNORMAL [None]
  - SUBDURAL HAEMATOMA [None]
